FAERS Safety Report 25653014 (Version 1)
Quarter: 2025Q3

REPORT INFORMATION
  Report Type: Spontaneous
  Country: US (occurrence: US)
  Receive Date: 20250807
  Receipt Date: 20250807
  Transmission Date: 20251020
  Serious: No
  Sender: SANOFI AVENTIS
  Company Number: US-SA-2025SA229863

PATIENT
  Sex: Male
  Weight: 95.45 kg

DRUGS (1)
  1. DUPIXENT [Suspect]
     Active Substance: DUPILUMAB
     Indication: Dermatitis atopic
     Dosage: 1 DF, QOW
     Route: 058

REACTIONS (8)
  - Eyelid rash [Unknown]
  - Eyelid margin crusting [Unknown]
  - Eye discharge [Unknown]
  - Myalgia [Unknown]
  - Dizziness [Unknown]
  - Injection site reaction [Unknown]
  - Oral herpes [Unknown]
  - Arthralgia [Unknown]
